FAERS Safety Report 8008607-X (Version None)
Quarter: 2011Q4

REPORT INFORMATION
  Report Type: 
  Country: None (occurrence: None)
  Receive Date: 20111227
  Receipt Date: 20101130
  Transmission Date: 20120403
  Serious: Yes (Other)
  Sender: FDA-Public Use
  Company Number: BR-ROCHE-1024781

PATIENT
  Sex: Female
  Weight: 98 kg

DRUGS (9)
  1. HYDROCHLOROTHIAZIDE [Concomitant]
  2. DICLOPHENAC [Concomitant]
  3. CALCIUM CARBONATE [Concomitant]
  4. OMEPRAZOLE [Concomitant]
  5. ALENDRONATE SODIUM [Concomitant]
  6. ARAVA [Concomitant]
  7. MABTHERA [Suspect]
     Indication: RHEUMATOID ARTHRITIS
     Dates: start: 20100430, end: 20100514
  8. PREDNISONE [Concomitant]
  9. LOSARTAN POTASSIUM [Concomitant]

REACTIONS (7)
  - CATARACT [None]
  - WEIGHT INCREASED [None]
  - URINARY TRACT INFECTION [None]
  - ARTHROPATHY [None]
  - INSOMNIA [None]
  - BONE PAIN [None]
  - CARDIAC DISORDER [None]
